FAERS Safety Report 20428928 (Version 1)
Quarter: 2022Q1

REPORT INFORMATION
  Report Type: Spontaneous
  Country: FR (occurrence: FR)
  Receive Date: 20220204
  Receipt Date: 20220204
  Transmission Date: 20220423
  Serious: Yes (Hospitalization, Other)
  Sender: FDA-Public Use
  Company Number: FR-AMNEAL PHARMACEUTICALS-2022-AMRX-00187

PATIENT
  Sex: Female

DRUGS (3)
  1. SIROLIMUS [Suspect]
     Active Substance: SIROLIMUS
     Indication: Chronic graft versus host disease in liver
     Dosage: 0.5 MG/24HR
     Route: 065
     Dates: start: 2015, end: 201802
  2. SIROLIMUS [Suspect]
     Active Substance: SIROLIMUS
     Dosage: 1 MG/24HR
     Route: 065
     Dates: start: 2015, end: 201802
  3. PREDNISONE [Concomitant]
     Active Substance: PREDNISONE
     Indication: Chronic graft versus host disease in liver
     Dosage: 11 MG/24HR
     Dates: start: 2015, end: 201802

REACTIONS (1)
  - Alveolar proteinosis [Recovered/Resolved]
